FAERS Safety Report 6701510-4 (Version None)
Quarter: 2010Q2

REPORT INFORMATION
  Report Type: 
  Country: None (occurrence: None)
  Receive Date: 20100429
  Receipt Date: 20100420
  Transmission Date: 20101027
  Serious: Yes (Hospitalization)
  Sender: FDA-Public Use
  Company Number: US-JNJFOC-20100405728

PATIENT
  Sex: Female
  Weight: 75.3 kg

DRUGS (3)
  1. DURAGESIC-100 [Suspect]
     Indication: SCIATICA
     Route: 062
  2. CELEXA [Suspect]
     Indication: DEPRESSION
     Route: 048
  3. SYNTHROID [Concomitant]
     Indication: HYPOTHYROIDISM
     Route: 048

REACTIONS (16)
  - ASTHMA [None]
  - DEPRESSION [None]
  - DRUG DOSE OMISSION [None]
  - FORMICATION [None]
  - HALLUCINATION [None]
  - HOMICIDAL IDEATION [None]
  - INSOMNIA [None]
  - INTERVERTEBRAL DISC DEGENERATION [None]
  - INTERVERTEBRAL DISC DISORDER [None]
  - INTERVERTEBRAL DISC PROTRUSION [None]
  - PAIN [None]
  - SCAR [None]
  - TREATMENT NONCOMPLIANCE [None]
  - UPPER RESPIRATORY TRACT INFECTION [None]
  - WEIGHT INCREASED [None]
  - WITHDRAWAL SYNDROME [None]
